FAERS Safety Report 4322274-8 (Version None)
Quarter: 2004Q1

REPORT INFORMATION
  Report Type: 
  Country: None (occurrence: None)
  Receive Date: 20040319
  Receipt Date: 20040310
  Transmission Date: 20041129
  Serious: Yes (Death, Hospitalization)
  Sender: FDA-Public Use
  Company Number: 163-20785-03090726(1)

PATIENT
  Age: 56 Year
  Sex: Male

DRUGS (5)
  1. THALOMID [Suspect]
     Indication: MULTIPLE MYELOMA
     Dosage: 200 MG, QD, ORAL
     Route: 048
     Dates: start: 20030407
  2. EPOGEN [Concomitant]
  3. PAXIL [Concomitant]
  4. PREVACID [Concomitant]
  5. PERCOCET [Concomitant]

REACTIONS (2)
  - DIVERTICULITIS [None]
  - LOWER GASTROINTESTINAL HAEMORRHAGE [None]
